FAERS Safety Report 11965617 (Version 2)
Quarter: 2016Q1

REPORT INFORMATION
  Report Type: Spontaneous
  Country: AT (occurrence: AT)
  Receive Date: 20160127
  Receipt Date: 20160331
  Transmission Date: 20160526
  Serious: Yes (Hospitalization)
  Sender: FDA-Public Use
  Company Number: PHHY2016AT004792

PATIENT
  Age: 5 Year
  Sex: Female
  Weight: 19 kg

DRUGS (1)
  1. EXJADE [Suspect]
     Active Substance: DEFERASIROX
     Indication: THALASSAEMIA BETA
     Dosage: 250 MG, BID
     Route: 065
     Dates: start: 201205, end: 20151221

REACTIONS (10)
  - Hypophosphataemia [Recovered/Resolved]
  - Livedo reticularis [Recovered/Resolved]
  - Proteinuria [Recovered/Resolved]
  - Liver function test abnormal [Recovered/Resolved]
  - Metabolic acidosis [Recovered/Resolved]
  - Glycosuria [Recovered/Resolved]
  - Hypoproteinaemia [Recovered/Resolved]
  - Hyponatraemia [Recovered/Resolved]
  - Abdominal pain [Recovered/Resolved]
  - Oedema peripheral [Recovered/Resolved]

NARRATIVE: CASE EVENT DATE: 201512
